FAERS Safety Report 16821461 (Version 1)
Quarter: 2019Q4

REPORT INFORMATION
  Report Type: Spontaneous
  Country: US (occurrence: US)
  Receive Date: 20190917
  Receipt Date: 20190917
  Transmission Date: 20200122
  Serious: No
  Sender: FDA-Public Use
  Company Number: None

PATIENT
  Age: 57 Year
  Sex: Female
  Weight: 85.5 kg

DRUGS (4)
  1. BYSTOLIC [Suspect]
     Active Substance: NEBIVOLOL HYDROCHLORIDE
     Indication: HYPERTENSION
     Route: 048
     Dates: start: 20190909, end: 20190910
  2. LEVOTHYROXINE 50 MCG TABLET 1 DAILY [Concomitant]
  3. VENLAFAXINE HCL ER 150 MG CAP 1 DAILY [Concomitant]
  4. METOPROLOL SUCC ER 50 MG TAB 1 DAILY [Concomitant]

REACTIONS (1)
  - Rash [None]

NARRATIVE: CASE EVENT DATE: 20190909
